FAERS Safety Report 22267788 (Version 2)
Quarter: 2023Q2

REPORT INFORMATION
  Report Type: Spontaneous
  Country: GR (occurrence: GR)
  Receive Date: 20230430
  Receipt Date: 20230524
  Transmission Date: 20230722
  Serious: Yes (Other)
  Sender: FDA-Public Use
  Company Number: GR-009507513-2304GRC002406

PATIENT
  Age: 49 Year
  Sex: Male

DRUGS (7)
  1. RECARBRIO [Suspect]
     Active Substance: CILASTATIN\IMIPENEM ANHYDROUS\RELEBACTAM ANHYDROUS
     Indication: Klebsiella infection
     Dosage: NORMAL DOSE
     Dates: start: 20230331
  2. RECARBRIO [Suspect]
     Active Substance: CILASTATIN\IMIPENEM ANHYDROUS\RELEBACTAM ANHYDROUS
     Dosage: HALF DOSE
     Dates: start: 20230401
  3. RECARBRIO [Suspect]
     Active Substance: CILASTATIN\IMIPENEM ANHYDROUS\RELEBACTAM ANHYDROUS
     Dosage: 1/3 OF DOSE
     Dates: start: 20230402, end: 202304
  4. CUBICIN [Concomitant]
     Active Substance: DAPTOMYCIN
     Indication: Infection
     Dosage: UNK
     Dates: end: 202304
  5. CUBICIN [Concomitant]
     Active Substance: DAPTOMYCIN
     Dosage: UNK
     Dates: start: 20230419
  6. COLISTIN [Concomitant]
     Active Substance: COLISTIN
     Indication: Infection
     Dosage: UNK
     Dates: end: 202304
  7. COLISTIN [Concomitant]
     Active Substance: COLISTIN
     Dosage: UNK
     Dates: start: 20230419

REACTIONS (4)
  - Seizure [Recovered/Resolved]
  - Seizure [Recovered/Resolved]
  - Cholestasis [Unknown]
  - Incorrect dose administered [Unknown]

NARRATIVE: CASE EVENT DATE: 20230331
